FAERS Safety Report 9668911 (Version 1)
Quarter: 2013Q4

REPORT INFORMATION
  Report Type: Report from Study
  Country: CA (occurrence: CA)
  Receive Date: 20131105
  Receipt Date: 20131105
  Transmission Date: 20140711
  Serious: Yes (Death)
  Sender: FDA-Public Use
  Company Number: PHHY2013CA124897

PATIENT
  Sex: Male

DRUGS (3)
  1. ACLASTA [Suspect]
     Indication: OSTEOPOROSIS
     Dosage: UNK
     Route: 042
     Dates: start: 20110222
  2. ACLASTA [Suspect]
     Dosage: UNK
     Route: 042
     Dates: start: 20120222
  3. ACLASTA [Suspect]
     Dosage: UNK
     Route: 042
     Dates: start: 20130130

REACTIONS (1)
  - Death [Fatal]
